FAERS Safety Report 25794762 (Version 1)
Quarter: 2025Q3

REPORT INFORMATION
  Report Type: Report from Study
  Country: US (occurrence: US)
  Receive Date: 20250912
  Receipt Date: 20250912
  Transmission Date: 20251021
  Serious: Yes (Hospitalization, Other)
  Sender: MALLINCKRODT
  Company Number: US-MALLINCKRODT-MNK202505476

PATIENT
  Sex: Female

DRUGS (1)
  1. CORTICOTROPIN [Suspect]
     Active Substance: CORTICOTROPIN
     Indication: Sarcoidosis
     Route: 058
     Dates: start: 202410

REACTIONS (5)
  - Pulmonary embolism [Recovering/Resolving]
  - Appendicectomy [Unknown]
  - Lymphoedema [Not Recovered/Not Resolved]
  - Herpes zoster [Recovering/Resolving]
  - Fluid retention [Not Recovered/Not Resolved]
